FAERS Safety Report 24442569 (Version 2)
Quarter: 2024Q4

REPORT INFORMATION
  Report Type: Spontaneous
  Country: AR (occurrence: AR)
  Receive Date: 20241016
  Receipt Date: 20241029
  Transmission Date: 20250114
  Serious: Yes (Hospitalization)
  Sender: NOVARTIS
  Company Number: AR-002147023-PHHY2018AR172259

PATIENT
  Age: 68 Year
  Sex: Male

DRUGS (2)
  1. GLYCOPYRRONIUM\INDACATEROL [Suspect]
     Active Substance: GLYCOPYRRONIUM\INDACATEROL
     Indication: Chronic obstructive pulmonary disease
     Dosage: UNK
     Route: 055
     Dates: start: 2019
  2. SYMBICORT [Concomitant]
     Active Substance: BUDESONIDE\FORMOTEROL FUMARATE DIHYDRATE
     Indication: Product used for unknown indication
     Dosage: UNK
     Route: 065

REACTIONS (4)
  - Pneumonia [Recovering/Resolving]
  - General physical health deterioration [Recovering/Resolving]
  - Oxygen saturation decreased [Recovering/Resolving]
  - Chronic obstructive pulmonary disease [Recovering/Resolving]

NARRATIVE: CASE EVENT DATE: 20241001
